FAERS Safety Report 16235052 (Version 2)
Quarter: 2019Q2

REPORT INFORMATION
  Report Type: Spontaneous
  Country: IT (occurrence: IT)
  Receive Date: 20190424
  Receipt Date: 20190607
  Transmission Date: 20190711
  Serious: Yes (Hospitalization, Other)
  Sender: FDA-Public Use
  Company Number: IT-MYLANLABS-2019M1037308

PATIENT
  Age: 37 Year
  Sex: Male

DRUGS (4)
  1. BECLOMETASONE [Concomitant]
     Active Substance: BECLOMETHASONE DIPROPIONATE
     Dosage: 100 MICROGRAM
     Route: 065
  2. MONTELUKAST [Suspect]
     Active Substance: MONTELUKAST SODIUM
     Indication: PRODUCT USED FOR UNKNOWN INDICATION
     Dosage: 10 MILLIGRAM, QD
     Route: 065
  3. DILTIAZEM. [Concomitant]
     Active Substance: DILTIAZEM
     Dosage: 120 MILLIGRAM, QD (120 MG X 3/DAY)
     Route: 065
  4. DILTIAZEM. [Concomitant]
     Active Substance: DILTIAZEM
     Dosage: 120MG X 3/DAY
     Route: 065

REACTIONS (4)
  - Cardiac arrest [Recovered/Resolved]
  - Eosinophilia [Recovered/Resolved]
  - Acute coronary syndrome [Recovered/Resolved]
  - Kounis syndrome [Recovered/Resolved]
